FAERS Safety Report 13687160 (Version 2)
Quarter: 2017Q3

REPORT INFORMATION
  Report Type: Spontaneous
  Country: BR (occurrence: BR)
  Receive Date: 20170623
  Receipt Date: 20170721
  Transmission Date: 20171127
  Serious: Yes (Other)
  Sender: FDA-Public Use
  Company Number: BR-TARO-2017TAR00526

PATIENT
  Age: 62 Year
  Sex: Female
  Weight: 63 kg

DRUGS (3)
  1. PLIAGLIS [Suspect]
     Active Substance: LIDOCAINE\TETRACAINE
     Indication: ANAESTHESIA
     Dosage: 1 APPLICATION, ONCE
     Route: 061
     Dates: start: 20170606, end: 20170606
  2. DYSPORT [Suspect]
     Active Substance: ABOBOTULINUMTOXINA
     Indication: SKIN WRINKLING
     Dosage: 10 DOSAGE UNITS, ONCE
     Dates: start: 20170606, end: 20170606
  3. RESTYLANE PERLANE [Suspect]
     Active Substance: HYALURONIC ACID
     Indication: SKIN WRINKLING
     Dosage: 2 ML, ONCE
     Route: 058
     Dates: start: 20170606, end: 20170606

REACTIONS (4)
  - Pruritus [Recovered/Resolved]
  - Deformity [Recovered/Resolved]
  - Erythema [Recovered/Resolved]
  - Swelling face [Recovered/Resolved]

NARRATIVE: CASE EVENT DATE: 20170606
